FAERS Safety Report 8502597-9 (Version None)
Quarter: 2012Q3

REPORT INFORMATION
  Report Type: 
  Country: None (occurrence: None)
  Receive Date: 20120711
  Receipt Date: 20120709
  Transmission Date: 20120928
  Serious: Yes (Death)
  Sender: FDA-Public Use
  Company Number: CO-PFIZER INC-2012165111

PATIENT
  Sex: Male

DRUGS (3)
  1. OLMESARTAN MEDOXOMIL AND HYDROCHLOROTHIZIDE [Suspect]
     Dosage: 20/12.5 MG, 1X/DAY
     Dates: start: 20080203
  2. LIPITOR [Suspect]
     Dosage: 10 MG, 1X/DAY
     Dates: start: 20080203
  3. NORVASC [Suspect]
     Dosage: 10 MG, 1X/DAY
     Dates: start: 20080203

REACTIONS (1)
  - DEATH [None]
